FAERS Safety Report 5008374-8 (Version None)
Quarter: 2006Q2

REPORT INFORMATION
  Report Type: 
  Country: None (occurrence: None)
  Receive Date: 20060523
  Receipt Date: 20060511
  Transmission Date: 20061013
  Serious: Yes (Death)
  Sender: FDA-Public Use
  Company Number: AU-BRISTOL-MYERS SQUIBB COMPANY-13378880

PATIENT
  Age: 44 Year
  Sex: Male

DRUGS (5)
  1. EFAVIRENZ [Suspect]
  2. CELECOXIB [Suspect]
  3. VIREAD [Suspect]
     Indication: HIV INFECTION
     Route: 048
  4. EMTRIVA [Suspect]
     Indication: HIV INFECTION
     Route: 048
  5. PENICILLIN [Concomitant]

REACTIONS (1)
  - HEPATOTOXICITY [None]
